FAERS Safety Report 23301057 (Version 1)
Quarter: 2023Q4

REPORT INFORMATION
  Report Type: Spontaneous
  Country: US (occurrence: None)
  Receive Date: 20231215
  Receipt Date: 20231215
  Transmission Date: 20240110
  Serious: Yes (Death, Hospitalization)
  Sender: FDA-Public Use
  Company Number: 2023A285061

PATIENT
  Age: 52 Year
  Sex: Female

DRUGS (13)
  1. OMEPRAZOLE [Suspect]
     Active Substance: OMEPRAZOLE
  2. METOPROLOL [Suspect]
     Active Substance: METOPROLOL
  3. VERAPAMIL [Suspect]
     Active Substance: VERAPAMIL HYDROCHLORIDE
  4. GABAPENTIN [Suspect]
     Active Substance: GABAPENTIN
  5. TAMSULOSIN [Suspect]
     Active Substance: TAMSULOSIN
  6. DULOXETINE [Suspect]
     Active Substance: DULOXETINE
  7. TRAMADOL [Suspect]
     Active Substance: TRAMADOL\TRAMADOL HYDROCHLORIDE
  8. OXYBUTYNIN [Suspect]
     Active Substance: OXYBUTYNIN
  9. RIZATRIPTAN [Suspect]
     Active Substance: RIZATRIPTAN
  10. ACYCLOVIR [Suspect]
     Active Substance: ACYCLOVIR
  11. METHENAMINE\SODIUM SALICYLATE [Suspect]
     Active Substance: METHENAMINE\SODIUM SALICYLATE
  12. BUSPIRONE [Suspect]
     Active Substance: BUSPIRONE HYDROCHLORIDE
  13. CETIRIZINE [Suspect]
     Active Substance: CETIRIZINE HYDROCHLORIDE

REACTIONS (2)
  - Toxicity to various agents [Fatal]
  - Completed suicide [Fatal]
